FAERS Safety Report 9728749 (Version 6)
Quarter: 2014Q2

REPORT INFORMATION
  Report Type: Spontaneous
  Country: HU (occurrence: HU)
  Receive Date: 20131204
  Receipt Date: 20140603
  Transmission Date: 20141212
  Serious: Yes (Other)
  Sender: FDA-Public Use
  Company Number: HU-PFIZER INC-2013344024

PATIENT
  Age: 60 Year
  Sex: Female

DRUGS (6)
  1. SUTENT [Suspect]
     Indication: NEOPLASM MALIGNANT
     Dosage: 50 MG, 1X/DAY 1ST CYCLE
     Route: 048
     Dates: start: 20131114, end: 20131127
  2. SUTENT [Suspect]
     Dosage: 37.5 MG, 1X/DAY 2ND CYCLE
     Route: 048
     Dates: start: 20131209, end: 20140105
  3. SUTENT [Suspect]
     Dosage: 37.5 MG, 1X/DAY 3RD CYCLE
     Route: 048
     Dates: start: 20140123
  4. SUTENT [Suspect]
     Dosage: 37.5 MG, 1X/DAY 4TH CYCLE
     Route: 048
  5. SUTENT [Suspect]
     Dosage: 37.5 MG, 1X/DAY 5TH CYCLE
     Route: 048
  6. MEFORAL [Concomitant]
     Indication: TYPE 2 DIABETES MELLITUS
     Dosage: UNK

REACTIONS (3)
  - Agranulocytosis [Recovered/Resolved]
  - Hypertension [Not Recovered/Not Resolved]
  - Fatigue [Unknown]
